FAERS Safety Report 7563240-9 (Version None)
Quarter: 2011Q2

REPORT INFORMATION
  Report Type: 
  Country: None (occurrence: None)
  Receive Date: 20110622
  Receipt Date: 20110620
  Transmission Date: 20111010
  Serious: Yes (Hospitalization)
  Sender: FDA-Public Use
  Company Number: IT-PFIZER INC-2011136467

PATIENT
  Age: 50 Year
  Sex: Female

DRUGS (4)
  1. LORAZEPAM [Suspect]
     Indication: INTENTIONAL SELF-INJURY
     Dosage: 3 MG, TOTAL DOSE
     Route: 048
     Dates: start: 20110616, end: 20110616
  2. LASIX [Suspect]
     Indication: INTENTIONAL SELF-INJURY
     Dosage: 75 MG, TOTAL DOSE
     Route: 048
     Dates: start: 20110616, end: 20110616
  3. VENLAFAXINE HYDROCHLORIDE [Concomitant]
     Indication: DEPRESSION
     Dosage: 150 MG, UNK
     Route: 048
  4. GABAPENTIN [Suspect]
     Dosage: 1200 MG,TOTAL DOSE
     Route: 048
     Dates: start: 20110616, end: 20110616

REACTIONS (3)
  - BRADYKINESIA [None]
  - TACHYCARDIA [None]
  - BRADYPHRENIA [None]
